FAERS Safety Report 18744961 (Version 1)
Quarter: 2021Q1

REPORT INFORMATION
  Report Type: Spontaneous
  Country: US (occurrence: US)
  Receive Date: 20210114
  Receipt Date: 20210114
  Transmission Date: 20210419
  Serious: Yes (Hospitalization)
  Sender: FDA-Public Use
  Company Number: None

PATIENT
  Sex: Male

DRUGS (14)
  1. LISINOPRIL. [Concomitant]
     Active Substance: LISINOPRIL
  2. TRAMADOL HCL [Concomitant]
     Active Substance: TRAMADOL HYDROCHLORIDE
  3. WARFARIN [Concomitant]
     Active Substance: WARFARIN
  4. CYCLOBENZAPR [Concomitant]
     Active Substance: CYCLOBENZAPRINE
  5. CEPHALEXIN. [Concomitant]
     Active Substance: CEPHALEXIN
  6. ASPIRIN. [Concomitant]
     Active Substance: ASPIRIN
  7. DOK [Concomitant]
     Active Substance: DOCUSATE SODIUM
  8. ENOXAPARIN [Concomitant]
     Active Substance: ENOXAPARIN
  9. METOPROL TAR [Concomitant]
  10. HUMIRA [Suspect]
     Active Substance: ADALIMUMAB
     Indication: RHEUMATOID ARTHRITIS
     Dosage: ?          OTHER DOSE:1 PEN;?
     Route: 058
     Dates: start: 20170503
  11. ECONAZOLE. [Concomitant]
     Active Substance: ECONAZOLE NITRATE
  12. GABAPENTIN. [Concomitant]
     Active Substance: GABAPENTIN
  13. HYDROCO/APAP [Concomitant]
     Active Substance: ACETAMINOPHEN\HYDROCODONE
  14. ROSUVASTATIN. [Concomitant]
     Active Substance: ROSUVASTATIN

REACTIONS (3)
  - Surgery [None]
  - Condition aggravated [None]
  - Antibiotic therapy [None]
